FAERS Safety Report 4686254-5 (Version None)
Quarter: 2005Q2

REPORT INFORMATION
  Report Type: 
  Country: None (occurrence: None)
  Receive Date: 20050607
  Receipt Date: 20050524
  Transmission Date: 20051028
  Serious: Yes (Hospitalization)
  Sender: FDA-Public Use
  Company Number: 2005067561

PATIENT
  Age: 75 Year
  Sex: Male
  Weight: 87.0906 kg

DRUGS (6)
  1. BEXTRA [Suspect]
     Indication: PAIN
     Dosage: 10 MG (10 MG, 1 IN 1 D) ORAL
     Route: 048
  2. OXAPROZIN [Suspect]
     Indication: ARTHRALGIA
     Dosage: 1200 MG (600 MG, 2 IN 1 D) ORAL
     Route: 048
     Dates: start: 20050301
  3. PRAVACHOL [Concomitant]
  4. PLENDIL [Concomitant]
  5. VITAMINS [Concomitant]
  6. METHADOSE (METHADONE HYDROCHLORIDE) [Concomitant]

REACTIONS (11)
  - DECREASED APPETITE [None]
  - DRUG INEFFECTIVE [None]
  - FEELING ABNORMAL [None]
  - HEART RATE INCREASED [None]
  - HYPERHIDROSIS [None]
  - NAUSEA [None]
  - NERVOUSNESS [None]
  - PHOTOPSIA [None]
  - PULMONARY EMBOLISM [None]
  - RASH PRURITIC [None]
  - WEIGHT DECREASED [None]
